FAERS Safety Report 25243367 (Version 2)
Quarter: 2025Q2

REPORT INFORMATION
  Report Type: Spontaneous
  Country: IT (occurrence: IT)
  Receive Date: 20250428
  Receipt Date: 20250509
  Transmission Date: 20250717
  Serious: Yes (Hospitalization, Other)
  Sender: MSN LABORATORIES PRIVATE LIMITED
  Company Number: IT-MSNLABS-2025MSNLIT01015

PATIENT

DRUGS (3)
  1. LACOSAMIDE [Suspect]
     Active Substance: LACOSAMIDE
     Indication: Seizure
     Dosage: DISCONTINUED AFTER THREE DOSES DUE TO HYPERCKEMIA
     Route: 048
     Dates: start: 20240810, end: 20240812
  2. CANNABIS SATIVA SUBSP. INDICA TOP [Suspect]
     Active Substance: CANNABIS SATIVA SUBSP. INDICA TOP
     Indication: Substance use
     Route: 065
  3. MIDOMAFETAMINE [Concomitant]
     Active Substance: MIDOMAFETAMINE
     Route: 065

REACTIONS (3)
  - Blood creatine phosphokinase increased [Recovered/Resolved]
  - Rhabdomyolysis [Recovered/Resolved]
  - Cannabis interaction [Recovered/Resolved]
